FAERS Safety Report 12071207 (Version 2)
Quarter: 2016Q1

REPORT INFORMATION
  Report Type: Spontaneous
  Country: FR (occurrence: FR)
  Receive Date: 20160211
  Receipt Date: 20160324
  Transmission Date: 20160526
  Serious: Yes (Other)
  Sender: FDA-Public Use
  Company Number: FR-AMGEN-FRASP2016015917

PATIENT
  Age: 79 Year
  Sex: Female

DRUGS (5)
  1. ENBREL [Suspect]
     Active Substance: ETANERCEPT
     Indication: RHEUMATOID ARTHRITIS
     Dosage: 50 MG, WEEKLY
     Route: 058
     Dates: start: 20031120, end: 20151123
  2. HEMIGOXINE [Concomitant]
     Active Substance: DIGOXIN
     Dosage: 1 DF, 1X/DAY
     Route: 048
  3. LASILIX                            /00032601/ [Concomitant]
     Active Substance: FUROSEMIDE
     Dosage: 1 DF, 1X/DAY
     Route: 048
  4. ADENURIC [Concomitant]
     Active Substance: FEBUXOSTAT
     Dosage: 1 DF, 1X/DAY
     Route: 048
  5. PREVISCAN                          /00789001/ [Concomitant]
     Active Substance: FLUINDIONE
     Dosage: ADJUSTED DOSE, ONE INTAKE DAILY
     Route: 048

REACTIONS (1)
  - Bronchial carcinoma [Recovering/Resolving]

NARRATIVE: CASE EVENT DATE: 201502
